FAERS Safety Report 17106538 (Version 5)
Quarter: 2020Q4

REPORT INFORMATION
  Report Type: Spontaneous
  Country: US (occurrence: US)
  Receive Date: 20191203
  Receipt Date: 20201215
  Transmission Date: 20210113
  Serious: No
  Sender: FDA-Public Use
  Company Number: US-PFIZER INC-2019516479

PATIENT
  Age: 69 Year
  Sex: Female

DRUGS (1)
  1. XELJANZ XR [Suspect]
     Active Substance: TOFACITINIB CITRATE
     Indication: RHEUMATOID ARTHRITIS
     Dosage: 11 MG, QD (ONCE A DAY)
     Route: 048
     Dates: start: 201805

REACTIONS (12)
  - Abdominal pain upper [Unknown]
  - Pollakiuria [Unknown]
  - Headache [Unknown]
  - Dysuria [Unknown]
  - Arthralgia [Unknown]
  - Abdominal tenderness [Unknown]
  - Infection [Unknown]
  - Neck pain [Unknown]
  - Muscular weakness [Unknown]
  - Abdominal pain [Unknown]
  - Polydipsia [Unknown]
  - Gastritis [Unknown]
